FAERS Safety Report 6768345-8 (Version None)
Quarter: 2010Q2

REPORT INFORMATION
  Report Type: 
  Country: None (occurrence: None)
  Receive Date: 20100614
  Receipt Date: 20100608
  Transmission Date: 20101027
  Serious: Yes (Hospitalization)
  Sender: FDA-Public Use
  Company Number: CN-BRISTOL-MYERS SQUIBB COMPANY-15139926

PATIENT
  Sex: Male

DRUGS (6)
  1. BARACLUDE [Suspect]
     Indication: HEPATIC CIRRHOSIS
     Route: 048
     Dates: start: 20100101, end: 20100603
  2. BARACLUDE [Suspect]
     Indication: HEPATIC FAILURE
     Route: 048
     Dates: start: 20100101, end: 20100603
  3. BARACLUDE [Suspect]
     Indication: HEPATIC FUNCTION ABNORMAL
     Route: 048
     Dates: start: 20100101, end: 20100603
  4. BARACLUDE [Suspect]
     Indication: ASCITES
     Route: 048
     Dates: start: 20100101, end: 20100603
  5. CEFTRIAXONE [Suspect]
     Indication: PYREXIA
     Dates: start: 20100601
  6. VIRAZOLE [Suspect]
     Indication: PYREXIA
     Dates: start: 20100601

REACTIONS (7)
  - BLISTER [None]
  - BLOOD CREATINE PHOSPHOKINASE INCREASED [None]
  - FATIGUE [None]
  - MYALGIA [None]
  - MYOGLOBIN BLOOD INCREASED [None]
  - OEDEMA PERIPHERAL [None]
  - PYREXIA [None]
